FAERS Safety Report 20051012 (Version 2)
Quarter: 2021Q4

REPORT INFORMATION
  Report Type: Report from Study
  Country: GR (occurrence: GR)
  Receive Date: 20211110
  Receipt Date: 20211111
  Transmission Date: 20220303
  Serious: Yes (Hospitalization)
  Sender: FDA-Public Use
  Company Number: GR-ABBVIE-21K-066-4138491-00

PATIENT
  Sex: Female
  Weight: 78 kg

DRUGS (10)
  1. CARBIDOPA\LEVODOPA [Suspect]
     Active Substance: CARBIDOPA\LEVODOPA
     Indication: Parkinson^s disease
     Dosage: MORNING DOSE 4.5 ML, CONTINUOUS RATE 1.7 ML PER H, EXTRA DOSE 1 ML
     Route: 050
     Dates: start: 20200630
  2. CARBIDOPA\LEVODOPA [Suspect]
     Active Substance: CARBIDOPA\LEVODOPA
  3. MIRABEGRON [Concomitant]
     Active Substance: MIRABEGRON
     Indication: Product used for unknown indication
     Route: 048
  4. CYMBALTA [Concomitant]
     Active Substance: DULOXETINE HYDROCHLORIDE
     Indication: Depression
     Route: 048
  5. THYROSTAT [Concomitant]
     Indication: Hyperthyroidism
     Dosage: UNIT DOSE: 2.5 MG, FORM STRENGTH: 5 MG
     Route: 048
  6. BUSPIRONE HYDROCHLORIDE [Concomitant]
     Active Substance: BUSPIRONE HYDROCHLORIDE
     Indication: Depression
     Route: 048
  7. IRBESARTAN [Concomitant]
     Active Substance: IRBESARTAN
     Indication: Hypertension
     Route: 048
  8. NEBIVOLOL HYDROCHLORIDE [Concomitant]
     Active Substance: NEBIVOLOL HYDROCHLORIDE
     Indication: Hypotension
     Dosage: UNIT DOSE: 2.5 MG, FORM STRENGTH: 5 MG
     Route: 048
  9. VITAMIN B12 [Concomitant]
     Active Substance: CYANOCOBALAMIN
     Indication: Product used for unknown indication
     Route: 048
  10. TROFOCARD [Concomitant]
     Indication: Product used for unknown indication
     Route: 048

REACTIONS (5)
  - Shoulder arthroplasty [Unknown]
  - Mobility decreased [Not Recovered/Not Resolved]
  - Arthralgia [Not Recovered/Not Resolved]
  - Unintentional medical device removal [Unknown]
  - Gait disturbance [Not Recovered/Not Resolved]
